FAERS Safety Report 7797176-5 (Version None)
Quarter: 2011Q4

REPORT INFORMATION
  Report Type: 
  Country: None (occurrence: None)
  Receive Date: 20111005
  Receipt Date: 20110926
  Transmission Date: 20120403
  Serious: Yes (Other)
  Sender: FDA-Public Use
  Company Number: PHFR2011GB03441

PATIENT
  Sex: Male

DRUGS (3)
  1. CLOZAPINE [Suspect]
     Indication: SCHIZOPHRENIA
     Route: 048
     Dates: start: 20110210, end: 20110531
  2. ARIPIPRAZOLE [Concomitant]
     Indication: SOMATOFORM DISORDER
     Dosage: 10 MG, DAILY
     Route: 048
     Dates: start: 20110502
  3. CLONAZEPAM [Concomitant]
     Dosage: 3 MG, DAILY
     Route: 048
     Dates: start: 20110610, end: 20110617

REACTIONS (2)
  - DIZZINESS [None]
  - HEAD DISCOMFORT [None]
